FAERS Safety Report 4502528-2 (Version None)
Quarter: 2004Q4

REPORT INFORMATION
  Report Type: 
  Country: None (occurrence: None)
  Receive Date: 20041110
  Receipt Date: 20041027
  Transmission Date: 20050328
  Serious: Yes (Disabling)
  Sender: FDA-Public Use
  Company Number: 2004-BP-09729AU

PATIENT
  Age: 74 Year
  Sex: Male

DRUGS (15)
  1. SPIRIVA [Suspect]
     Indication: CHRONIC OBSTRUCTIVE AIRWAYS DISEASE
     Dosage: 18 MCG (18 MCG, 1 DAILY)
     Route: 055
  2. UREMIDE (FUROSEMIDE) (TA) [Concomitant]
  3. ZOCOR (TA) [Concomitant]
  4. TRANSIDERM-NITRO PATCHES (TTS) [Concomitant]
  5. COLGOUT (COLCHICINE) (TA) [Concomitant]
  6. CELESTONE M CREAM (TO) [Concomitant]
  7. TEMAZE (TEMAZEPAM) (TA) [Concomitant]
  8. PERIACTIN (CYPROHEPTADINE HYDROCHLORIDE) (TA) [Concomitant]
  9. DILATREND (CARVEDIOLOL) (TA) [Concomitant]
  10. AVAPRO (IRBESARTAN) (TA) [Concomitant]
  11. ASPIRIN [Concomitant]
  12. ANTENAX (TA) [Concomitant]
  13. LIPITOR [Concomitant]
  14. ASMOL (SALBUTAMOL SULFATE) (AEM) [Concomitant]
  15. PRAVACHOL (PRAVASTATIN SODIUM) (TA) [Concomitant]

REACTIONS (5)
  - DRUG INEFFECTIVE [None]
  - DYSPNOEA [None]
  - MEDICATION ERROR [None]
  - NOCTURNAL DYSPNOEA [None]
  - PHARMACEUTICAL PRODUCT COMPLAINT [None]
